FAERS Safety Report 25751902 (Version 2)
Quarter: 2025Q3

REPORT INFORMATION
  Report Type: Spontaneous
  Country: US (occurrence: US)
  Receive Date: 20250902
  Receipt Date: 20250910
  Transmission Date: 20251020
  Serious: Yes (Death, Hospitalization)
  Sender: JOHNSON AND JOHNSON
  Company Number: US-JNJFOC-20250835286

PATIENT
  Age: 67 Year
  Sex: Male
  Weight: 52.3 kg

DRUGS (1)
  1. TECVAYLI [Suspect]
     Active Substance: TECLISTAMAB-CQYV
     Indication: Plasma cell myeloma
     Dosage: A DOSE ON AUG-2025, PATIENT RECEIVED CYCLE 6 DAY 15 TECLISTAMAB ON 25-AUG-2025
     Route: 058

REACTIONS (2)
  - Pneumonia [Fatal]
  - Septic shock [Fatal]
